FAERS Safety Report 7420321-8 (Version None)
Quarter: 2011Q2

REPORT INFORMATION
  Report Type: 
  Country: None (occurrence: None)
  Receive Date: 20110418
  Receipt Date: 20110407
  Transmission Date: 20111010
  Serious: Yes (Other)
  Sender: FDA-Public Use
  Company Number: PHHY2011US29670

PATIENT
  Age: 83 Year
  Sex: Male

DRUGS (8)
  1. WELCHOL [Concomitant]
     Dosage: 625 MG, TID
  2. VOLTAREN [Concomitant]
     Dosage: SKIN APP TWICE DAILY
  3. OXCARBAZEPINE [Suspect]
     Indication: PARAESTHESIA
  4. OXCARBAZEPINE [Suspect]
     Indication: HYPOAESTHESIA
     Dosage: 300 MG, BID
     Dates: start: 20110316, end: 20110406
  5. VANCOMYCIN HCL [Concomitant]
     Dosage: 125 MG, QID
  6. FAMOTIDINE [Concomitant]
     Dosage: 20 MG, 1-2 PER DAYE
  7. DIGOXIN [Concomitant]
     Dosage: 0.125 MG, QD
  8. FLORESTOR [Concomitant]
     Dosage: 1 DF, BID

REACTIONS (14)
  - MUSCULOSKELETAL STIFFNESS [None]
  - ABDOMINAL PAIN [None]
  - MEMORY IMPAIRMENT [None]
  - TESTICULAR SWELLING [None]
  - TESTICULAR PAIN [None]
  - CHROMATURIA [None]
  - IRRITABILITY [None]
  - SOMNOLENCE [None]
  - TINNITUS [None]
  - MYALGIA [None]
  - DEPRESSION [None]
  - BACK PAIN [None]
  - FATIGUE [None]
  - URINARY INCONTINENCE [None]
